FAERS Safety Report 8194265-0 (Version None)
Quarter: 2012Q1

REPORT INFORMATION
  Report Type: 
  Country: None (occurrence: None)
  Receive Date: 20120308
  Receipt Date: 20120228
  Transmission Date: 20120608
  Serious: Yes (Other)
  Sender: FDA-Public Use
  Company Number: GB-JNJFOC-20120206539

PATIENT
  Age: 57 Year
  Sex: Female
  Weight: 45 kg

DRUGS (5)
  1. XARELTO [Suspect]
     Indication: HIP ARTHROPLASTY
     Route: 048
     Dates: start: 20111026, end: 20111029
  2. OMEPRAZOLE [Concomitant]
     Route: 048
  3. XARELTO [Suspect]
     Route: 048
     Dates: start: 20111101, end: 20111103
  4. ENOXAPARIN SODIUM [Concomitant]
  5. ETORICOXIB [Concomitant]

REACTIONS (2)
  - TACHYCARDIA [None]
  - EXTRASYSTOLES [None]
